FAERS Safety Report 16303215 (Version 4)
Quarter: 2019Q3

REPORT INFORMATION
  Report Type: Report from Study
  Country: CN (occurrence: CN)
  Receive Date: 20190513
  Receipt Date: 20190705
  Transmission Date: 20191004
  Serious: Yes (Hospitalization)
  Sender: FDA-Public Use
  Company Number: CN-ROCHE-2314166

PATIENT
  Age: 58 Year
  Sex: Male
  Weight: 84.5 kg

DRUGS (3)
  1. ATEZOLIZUMAB. [Suspect]
     Active Substance: ATEZOLIZUMAB
     Indication: HEPATOCELLULAR CARCINOMA
     Dosage: MOST RECENT DOSE ON 17/APR/2019 PRIOR TO EVENT
     Route: 042
     Dates: start: 20181212
  2. BEVACIZUMAB. [Suspect]
     Active Substance: BEVACIZUMAB
     Indication: HEPATOCELLULAR CARCINOMA
     Dosage: MOST RECENT DOSE ON 29/MAR/2019, 1110 MG
     Route: 042
     Dates: start: 20181212
  3. BARACLUDE [Concomitant]
     Active Substance: ENTECAVIR
     Indication: CHRONIC HEPATITIS B
     Route: 065
     Dates: start: 201408

REACTIONS (1)
  - Pleural effusion [Not Recovered/Not Resolved]

NARRATIVE: CASE EVENT DATE: 20190416
